FAERS Safety Report 8524609-9 (Version None)
Quarter: 2012Q3

REPORT INFORMATION
  Report Type: 
  Country: None (occurrence: None)
  Receive Date: 20120720
  Receipt Date: 20120119
  Transmission Date: 20120928
  Serious: Yes (Death)
  Sender: FDA-Public Use
  Company Number: US-ROCHE-1086844

PATIENT
  Sex: Female

DRUGS (1)
  1. LUCENTIS [Suspect]
     Indication: VEIN DISORDER
     Dates: start: 20101101, end: 20111201

REACTIONS (2)
  - DEATH [None]
  - INTRACRANIAL ANEURYSM [None]
